FAERS Safety Report 7602789-7 (Version None)
Quarter: 2011Q3

REPORT INFORMATION
  Report Type: 
  Country: None (occurrence: None)
  Receive Date: 20110711
  Receipt Date: 20110711
  Transmission Date: 20111222
  Serious: Yes (Other)
  Sender: FDA-Public Use
  Company Number: None

PATIENT
  Age: 60 Year
  Sex: Male
  Weight: 72.5755 kg

DRUGS (1)
  1. HUMIRA [Suspect]
     Indication: PSORIASIS
     Dosage: 40 MG/ 0.8 ML 1X EVERY OTHER WK SQ
     Route: 058
     Dates: start: 20110212, end: 20110329

REACTIONS (5)
  - OEDEMA PERIPHERAL [None]
  - ABDOMINAL DISTENSION [None]
  - JOINT SWELLING [None]
  - HAEMATOMA [None]
  - FLUID RETENTION [None]
